FAERS Safety Report 25951421 (Version 1)
Quarter: 2025Q4

REPORT INFORMATION
  Report Type: Spontaneous
  Country: US (occurrence: US)
  Receive Date: 20251023
  Receipt Date: 20251023
  Transmission Date: 20260118
  Serious: Yes (Other)
  Sender: DR REDDYS
  Company Number: US-DRL-USA-USA/2025/10/015730

PATIENT
  Age: 6 Year
  Sex: Male

DRUGS (1)
  1. MELPHALAN [Suspect]
     Active Substance: MELPHALAN
     Indication: Retinoblastoma
     Dosage: THREE CYCLES
     Route: 013

REACTIONS (2)
  - Choroidal neovascularisation [Recovering/Resolving]
  - Product use in unapproved indication [Unknown]
